FAERS Safety Report 5204588-2 (Version None)
Quarter: 2007Q1

REPORT INFORMATION
  Report Type: 
  Country: None (occurrence: None)
  Receive Date: 20070110
  Receipt Date: 20060517
  Transmission Date: 20070707
  Serious: No
  Sender: FDA-Public Use
  Company Number: US-BRISTOL-MYERS SQUIBB COMPANY-13380100

PATIENT
  Age: 21 Year
  Sex: Female
  Weight: 51 kg

DRUGS (5)
  1. ABILIFY [Suspect]
     Indication: BIPOLAR DISORDER
     Dosage: DURATION OF THERAPY:  2 TO 3 MONTHS
     Route: 048
     Dates: start: 20060101, end: 20060501
  2. ANESTHESIA [Concomitant]
     Indication: ORAL SURGERY
     Dates: start: 20060509
  3. PROZAC [Concomitant]
  4. XANAX [Concomitant]
     Dosage: DURATION OF THERAPY:  1 TO 2 YEARS.
  5. SUBOXONE [Concomitant]

REACTIONS (6)
  - ARTHRALGIA [None]
  - BACK PAIN [None]
  - JOINT STIFFNESS [None]
  - MYALGIA [None]
  - SOMNOLENCE [None]
  - WHITE BLOOD CELL COUNT INCREASED [None]
